FAERS Safety Report 17584802 (Version 1)
Quarter: 2020Q1

REPORT INFORMATION
  Report Type: Spontaneous
  Country: JP (occurrence: JP)
  Receive Date: 20200326
  Receipt Date: 20200326
  Transmission Date: 20200409
  Serious: Yes (Hospitalization, Other)
  Sender: FDA-Public Use
  Company Number: JP-SA-2019SA222836

PATIENT
  Age: 80 Year
  Sex: Female
  Weight: 40 kg

DRUGS (8)
  1. ILUAMIX [Concomitant]
     Indication: HYPERTENSION
     Dosage: 1 DF, QD
     Route: 048
  2. PREDNISOLONE. [Concomitant]
     Active Substance: PREDNISOLONE
     Indication: RHEUMATOID ARTHRITIS
     Dosage: 2.5 MG, QD
     Route: 048
  3. KEVZARA [Suspect]
     Active Substance: SARILUMAB
     Indication: RHEUMATOID ARTHRITIS
     Dosage: 200 MG, QOW
     Route: 058
     Dates: start: 20190725
  4. FUROSEMIDE. [Concomitant]
     Active Substance: FUROSEMIDE
     Indication: CHRONIC KIDNEY DISEASE
     Dosage: 40 MG, QD
     Route: 048
  5. BREDININ [Concomitant]
     Active Substance: MIZORIBINE
     Indication: RHEUMATOID ARTHRITIS
     Dosage: 150 MG, QD
     Route: 048
  6. URIADEC [Concomitant]
     Active Substance: TOPIROXOSTAT
     Indication: CHRONIC KIDNEY DISEASE
     Dosage: 20 MG, BID
     Route: 048
  7. SPIRONOLACTONE. [Concomitant]
     Active Substance: SPIRONOLACTONE
     Indication: CHRONIC KIDNEY DISEASE
     Dosage: 25 MG, QD
     Route: 048
  8. FERROMIA [Concomitant]
     Active Substance: SODIUM FERROUS CITRATE
     Indication: ANAEMIA
     Dosage: 100 MG, QD
     Route: 048

REACTIONS (2)
  - Abdominal pain [Recovered/Resolved]
  - Agranulocytosis [Recovered/Resolved]

NARRATIVE: CASE EVENT DATE: 20190809
